FAERS Safety Report 6005069-9 (Version None)
Quarter: 2008Q4

REPORT INFORMATION
  Report Type: 
  Country: None (occurrence: None)
  Receive Date: 20081216
  Receipt Date: 20081209
  Transmission Date: 20090506
  Serious: Yes (Hospitalization)
  Sender: FDA-Public Use
  Company Number: PHHY2008MX31490

PATIENT
  Sex: Female

DRUGS (2)
  1. DIOVAN HCT [Suspect]
     Indication: HYPERTENSION
     Dosage: 1 TAB (160 MG VALSARTAN/25 MG HYDROCHLOROTHIAZIDE) PER DAY
     Route: 048
     Dates: start: 20050501
  2. DOLAC [Concomitant]
     Indication: ARTHRITIS
     Dosage: 1 DF, QD

REACTIONS (2)
  - HYPOTENSION [None]
  - HYSTERECTOMY [None]
